FAERS Safety Report 24189556 (Version 1)
Quarter: 2024Q3

REPORT INFORMATION
  Report Type: Spontaneous
  Country: US (occurrence: US)
  Receive Date: 20240808
  Receipt Date: 20240808
  Transmission Date: 20241017
  Serious: Yes (Other)
  Sender: MERCK
  Company Number: US-ASTELLAS-2024US011965

PATIENT
  Age: 69 Year
  Sex: Male

DRUGS (20)
  1. PEMBROLIZUMAB [Suspect]
     Active Substance: PEMBROLIZUMAB
     Indication: Product used for unknown indication
     Dosage: UNK
  2. PADCEV [Suspect]
     Active Substance: ENFORTUMAB VEDOTIN-EJFV
     Indication: Transitional cell carcinoma metastatic
     Dosage: 1.25 MILLIGRAM/KILOGRAM, Q3W
     Route: 042
     Dates: start: 20240118, end: 20240220
  3. PADCEV [Suspect]
     Active Substance: ENFORTUMAB VEDOTIN-EJFV
     Dosage: 0.75 MILLIGRAM/KILOGRAM, Q3W
     Route: 042
  4. TAMSULOSIN [Concomitant]
     Active Substance: TAMSULOSIN
     Dosage: UNK
  5. ASPIRIN [Concomitant]
     Active Substance: ASPIRIN
     Dosage: UNK
  6. ATORVASTATIN [Concomitant]
     Active Substance: ATORVASTATIN
     Dosage: UNK
  7. CALCIUM CITRATE + D3 [Concomitant]
     Dosage: UNK
  8. CHOLECALCIFEROL [Concomitant]
     Active Substance: CHOLECALCIFEROL
  9. DOCUSATE [Concomitant]
     Active Substance: DOCUSATE
  10. LORATADINE [Concomitant]
     Active Substance: LORATADINE
     Dosage: UNK
  11. MAGNESIUM [Concomitant]
     Active Substance: MAGNESIUM
  12. NYSTATIN [Concomitant]
     Active Substance: NYSTATIN
  13. ONDANSETRON HYDROCHLORIDE [Concomitant]
     Active Substance: ONDANSETRON HYDROCHLORIDE
  14. OXYCODONE [Concomitant]
     Active Substance: OXYCODONE
  15. PREDNISONE [Concomitant]
     Active Substance: PREDNISONE
  16. TEMAZEPAM [Concomitant]
     Active Substance: TEMAZEPAM
  17. TIZANIDINE [Concomitant]
     Active Substance: TIZANIDINE
  18. HYDROCHLOROTHIAZIDE\TRIAMTERENE [Concomitant]
     Active Substance: HYDROCHLOROTHIAZIDE\TRIAMTERENE
  19. BUPROPION [Concomitant]
     Active Substance: BUPROPION
  20. OMEPRAZOLE [Concomitant]
     Active Substance: OMEPRAZOLE

REACTIONS (1)
  - Erythema multiforme [Recovering/Resolving]

NARRATIVE: CASE EVENT DATE: 20240220
